FAERS Safety Report 8277948-3 (Version None)
Quarter: 2012Q2

REPORT INFORMATION
  Report Type: 
  Country: None (occurrence: None)
  Receive Date: 20120412
  Receipt Date: 20120409
  Transmission Date: 20120825
  Serious: Yes (Hospitalization)
  Sender: FDA-Public Use
  Company Number: US-JNJFOC-20120404423

PATIENT
  Sex: Female
  Weight: 91.63 kg

DRUGS (2)
  1. STELARA [Suspect]
     Indication: PSORIASIS
     Route: 058
     Dates: start: 20091201
  2. CORTICOSTEROIDS [Concomitant]

REACTIONS (1)
  - PNEUMONIA [None]
